FAERS Safety Report 25005107 (Version 1)
Quarter: 2025Q1

REPORT INFORMATION
  Report Type: Spontaneous
  Country: US (occurrence: None)
  Receive Date: 20250223
  Receipt Date: 20250223
  Transmission Date: 20250408
  Serious: Yes (Death, Life-Threatening, Hospitalization, Disabling, Other)
  Sender: FDA-CTU
  Company Number: None

PATIENT
  Age: 63 Year
  Sex: Male
  Weight: 61.65 kg

DRUGS (12)
  1. ERTAPENEM [Suspect]
     Active Substance: ERTAPENEM
     Indication: Postoperative care
     Dosage: FREQUENCY : EVERY 8 HOURS;?
     Route: 042
  2. HEPARIN [Suspect]
     Active Substance: HEPARIN SODIUM
  3. SODIUM CHLORIDE [Suspect]
     Active Substance: SODIUM CHLORIDE
  4. MEROPENEM [Suspect]
     Active Substance: MEROPENEM
  5. VANCOMYCIN [Suspect]
     Active Substance: VANCOMYCIN
  6. DIPHENHYDRAMINE [Suspect]
     Active Substance: DIPHENHYDRAMINE
  7. EPINEPHRINE [Suspect]
     Active Substance: EPINEPHRINE
  8. FENTANYL [Suspect]
     Active Substance: FENTANYL
  9. HYDROCODONE [Suspect]
     Active Substance: HYDROCODONE
  10. MORPHINE [Suspect]
     Active Substance: MORPHINE
  11. MELOXICAM [Suspect]
     Active Substance: MELOXICAM
  12. TRAMADOL [Concomitant]
     Active Substance: TRAMADOL

REACTIONS (30)
  - Product complaint [None]
  - Adverse drug reaction [None]
  - Intestinal perforation [None]
  - Product communication issue [None]
  - Asthenia [None]
  - Pulmonary embolism [None]
  - Deep vein thrombosis [None]
  - Weight decreased [None]
  - Starvation [None]
  - Dehydration [None]
  - Prescribed overdose [None]
  - Iatrogenic injury [None]
  - General physical health deterioration [None]
  - Postoperative abscess [None]
  - Postoperative wound infection [None]
  - Asthenia [None]
  - Swelling [None]
  - Peripheral swelling [None]
  - Blister [None]
  - Dyspnoea [None]
  - Pain in extremity [None]
  - Medical device site burn [None]
  - Thermal burn [None]
  - Skin exfoliation [None]
  - Scrotal swelling [None]
  - Acute kidney injury [None]
  - Pulmonary oedema [None]
  - Serratia infection [None]
  - Sepsis [None]
  - Cardiomegaly [None]

NARRATIVE: CASE EVENT DATE: 20230505
